FAERS Safety Report 21096854 (Version 1)
Quarter: 2022Q3

REPORT INFORMATION
  Report Type: Spontaneous
  Country: JP (occurrence: JP)
  Receive Date: 20220718
  Receipt Date: 20220718
  Transmission Date: 20221027
  Serious: Yes (Death, Hospitalization, Other)
  Sender: FDA-Public Use
  Company Number: JP-CHUGAI-2022026751

PATIENT
  Age: 81 Year
  Sex: Male

DRUGS (22)
  1. TECENTRIQ [Suspect]
     Active Substance: ATEZOLIZUMAB
     Indication: Hepatocellular carcinoma
     Dosage: 1200 MILLIGRAM, SINGLE
     Route: 041
     Dates: start: 20211217, end: 20211217
  2. AVASTIN [Suspect]
     Active Substance: BEVACIZUMAB
     Indication: Hepatocellular carcinoma
     Dosage: 15 MILLIGRAM/KILOGRAM, SINGLE
     Route: 041
     Dates: start: 20211217, end: 20211217
  3. TRESIBA [Concomitant]
     Active Substance: INSULIN DEGLUDEC
     Indication: Type 2 diabetes mellitus
     Dosage: 6 UNK
     Route: 065
     Dates: end: 20211219
  4. TRESIBA [Concomitant]
     Active Substance: INSULIN DEGLUDEC
     Dosage: 6 UNK
     Route: 065
     Dates: start: 20211220
  5. NOVORAPID [Concomitant]
     Active Substance: INSULIN ASPART
     Indication: Type 2 diabetes mellitus
     Dosage: UNK
     Route: 065
     Dates: end: 20211213
  6. NOVORAPID [Concomitant]
     Active Substance: INSULIN ASPART
     Dosage: UNK
     Route: 065
     Dates: start: 20211214, end: 20211215
  7. NOVORAPID [Concomitant]
     Active Substance: INSULIN ASPART
     Dosage: UNK
     Route: 065
     Dates: start: 20211216
  8. NICORANDIL [Concomitant]
     Active Substance: NICORANDIL
     Dosage: 2 DOSAGE FORM, TID
     Route: 048
  9. REBAMIPIDE [Concomitant]
     Active Substance: REBAMIPIDE
     Dosage: 1 DOSAGE FORM, TID
     Route: 048
  10. URSODIOL [Concomitant]
     Active Substance: URSODIOL
     Dosage: 1 DOSAGE FORM, TID
     Route: 048
  11. ATORVASTATIN OD [Concomitant]
     Dosage: 2 DOSAGE FORM, QD
     Route: 048
  12. NEXIUM [Concomitant]
     Active Substance: ESOMEPRAZOLE MAGNESIUM
     Dosage: 1 DOSAGE FORM, QD
     Route: 048
  13. SERMION [NICERGOLINE] [Concomitant]
     Dosage: 1 DOSAGE FORM, BID
     Route: 048
  14. POTASSIUM ASPARTATE [Concomitant]
     Active Substance: POTASSIUM ASPARTATE
     Dosage: 2 DOSAGE FORM, BID
     Route: 048
  15. CILOSTAZOL [Concomitant]
     Active Substance: CILOSTAZOL
     Dosage: 2 DOSAGE FORM, BID
     Route: 048
  16. AMLODIPINE BESYLATE [Concomitant]
     Active Substance: AMLODIPINE BESYLATE
     Dosage: 1 DOSAGE FORM, QD
     Route: 048
  17. ASPIRIN [Concomitant]
     Active Substance: ASPIRIN
     Dosage: 1 DOSAGE FORM, QD
     Route: 048
  18. OLMESARTAN MEDOXOMIL [Concomitant]
     Active Substance: OLMESARTAN MEDOXOMIL
     Dosage: 1 DOSAGE FORM, QD
     Route: 048
  19. ETIZOLAM [Concomitant]
     Active Substance: ETIZOLAM
     Dosage: 1 DOSAGE FORM, QD
     Route: 048
  20. BROTIZOLAM [Concomitant]
     Active Substance: BROTIZOLAM
     Dosage: 1 DOSAGE FORM, QD
     Route: 048
  21. AMINO ACIDS, SOURCE UNSPECIFIED [Concomitant]
     Active Substance: AMINO ACIDS, SOURCE UNSPECIFIED
     Dosage: 1 DOSAGE FORM, TID
     Route: 048
  22. FERROUS CITRATE [Concomitant]
     Active Substance: FERROUS CITRATE
     Dosage: 1 DOSAGE FORM, BID
     Route: 048

REACTIONS (5)
  - Myocarditis [Fatal]
  - Pneumonia [Unknown]
  - Disseminated intravascular coagulation [Unknown]
  - Multiple organ dysfunction syndrome [Unknown]
  - Renal impairment [Unknown]

NARRATIVE: CASE EVENT DATE: 20220105
